FAERS Safety Report 9826084 (Version 1)
Quarter: 2013Q4

REPORT INFORMATION
  Report Type: Spontaneous
  Country: US (occurrence: None)
  Receive Date: 20131028
  Receipt Date: 20131028
  Transmission Date: 20140711
  Serious: No
  Sender: FDA-Public Use
  Company Number: 2013US002300

PATIENT
  Age: 55 Year
  Sex: Female
  Weight: 78 kg

DRUGS (6)
  1. ICLUSIG (PONATINIB)TABLET, 15MG [Suspect]
     Route: 048
     Dates: start: 20130111
  2. ALLEGRA [Concomitant]
  3. HYDROCODONE (HYDROCODONE) [Concomitant]
  4. IBUPROFEN (IBUPROFEN) [Concomitant]
  5. NIACIN (NIACIN) [Concomitant]
  6. OMEPRAZOLE (OMEPRAZOLE) [Concomitant]

REACTIONS (3)
  - Anaemia [None]
  - Chromaturia [None]
  - Dry skin [None]
